FAERS Safety Report 5730760-9 (Version None)
Quarter: 2008Q2

REPORT INFORMATION
  Report Type: 
  Country: None (occurrence: None)
  Receive Date: 20080507
  Receipt Date: 20080428
  Transmission Date: 20081010
  Serious: Yes (Hospitalization)
  Sender: FDA-Public Use
  Company Number: FR-PFIZER INC-2008036735

PATIENT
  Sex: Female

DRUGS (4)
  1. CELEBREX [Suspect]
     Route: 048
  2. PREVISCAN [Suspect]
     Indication: ATRIAL FIBRILLATION
     Route: 048
  3. LASILIX [Suspect]
     Route: 048
  4. FOSAVANCE [Suspect]
     Route: 048

REACTIONS (4)
  - ANAEMIA [None]
  - CONTUSION [None]
  - HAEMATOMA [None]
  - SUBCUTANEOUS HAEMATOMA [None]
